FAERS Safety Report 14183167 (Version 2)
Quarter: 2017Q4

REPORT INFORMATION
  Report Type: Spontaneous
  Country: CN (occurrence: CN)
  Receive Date: 20171113
  Receipt Date: 20171117
  Transmission Date: 20180321
  Serious: Yes (Hospitalization)
  Sender: FDA-Public Use
  Company Number: CN-BAYER-2017-212051

PATIENT
  Age: 55 Year
  Sex: Male

DRUGS (1)
  1. NEXAVAR [Suspect]
     Active Substance: SORAFENIB
     Dosage: 400 MG, BID
     Dates: start: 201204

REACTIONS (6)
  - Metastases to lung [None]
  - Pulmonary mass [None]
  - Hepatic neoplasm [None]
  - Hepatic neoplasm [None]
  - Hepatic neoplasm [None]
  - Surgery [None]

NARRATIVE: CASE EVENT DATE: 20120508
